FAERS Safety Report 9319707 (Version 3)
Quarter: 2013Q2

REPORT INFORMATION
  Report Type: Spontaneous
  Country: US (occurrence: US)
  Receive Date: 20130530
  Receipt Date: 20130610
  Transmission Date: 20140414
  Serious: Yes (Hospitalization)
  Sender: FDA-Public Use
  Company Number: US-ABBOTT-13P-163-1094154-00

PATIENT
  Age: 66 Year
  Sex: Male

DRUGS (12)
  1. HUMIRA [Suspect]
     Indication: PSORIASIS
     Route: 058
     Dates: start: 20130515, end: 20130522
  2. AMARYL [Concomitant]
     Indication: DIABETES MELLITUS
  3. METFORMIN [Concomitant]
     Indication: DIABETES MELLITUS
  4. ANAFRANIL [Concomitant]
     Indication: BIPOLAR DISORDER
  5. LITHIUM [Concomitant]
     Indication: BIPOLAR DISORDER
  6. WELLBUTRIN [Concomitant]
     Indication: BIPOLAR DISORDER
  7. PRIMIDONE [Concomitant]
     Indication: TREMOR
  8. LYRICA [Concomitant]
     Indication: NEUROPATHY PERIPHERAL
  9. FLEXERIL [Concomitant]
     Indication: MYALGIA
  10. VITAMIN D [Concomitant]
     Indication: VITAMIN SUPPLEMENTATION
  11. ASPIRIN [Concomitant]
     Indication: CARDIOVASCULAR EVENT PROPHYLAXIS
  12. ACTOS [Concomitant]
     Indication: DIABETES MELLITUS

REACTIONS (5)
  - Hypoaesthesia [Recovered/Resolved]
  - Muscular weakness [Recovered/Resolved]
  - Hypoaesthesia [Recovered/Resolved]
  - Muscular weakness [Recovered/Resolved]
  - Tremor [Recovered/Resolved]
